FAERS Safety Report 8918218 (Version 1)
Quarter: 2012Q4

REPORT INFORMATION
  Report Type: 
  Country: US (occurrence: US)
  Receive Date: 20121120
  Receipt Date: 20121120
  Transmission Date: 20130627
  Serious: No
  Sender: FDA-Public Use
  Company Number: US-ASTRAZENECA-2012SE24703

PATIENT
  Sex: Female

DRUGS (3)
  1. NEXIUM [Suspect]
     Route: 048
  2. ARICEPT [Suspect]
     Route: 065
  3. PREDNISONE [Concomitant]

REACTIONS (6)
  - Throat irritation [Unknown]
  - Cystitis [Unknown]
  - Adverse event [Unknown]
  - Temporal arteritis [Unknown]
  - Malaise [Unknown]
  - Intentional drug misuse [Unknown]
